FAERS Safety Report 6838445-2 (Version None)
Quarter: 2010Q3

REPORT INFORMATION
  Report Type: 
  Country: None (occurrence: None)
  Receive Date: 20100713
  Receipt Date: 20070610
  Transmission Date: 20110219
  Serious: No
  Sender: FDA-Public Use
  Company Number: US-PFIZER INC-2007047846

PATIENT
  Sex: Female
  Weight: 74.8 kg

DRUGS (3)
  1. CHANTIX [Suspect]
     Indication: SMOKING CESSATION THERAPY
     Dates: start: 20070601
  2. BENADRYL [Suspect]
     Indication: RASH PRURITIC
  3. AMPICILLIN [Suspect]

REACTIONS (3)
  - DRUG INEFFECTIVE [None]
  - HYPERSENSITIVITY [None]
  - RASH PRURITIC [None]
